FAERS Safety Report 9146983 (Version 1)
Quarter: 2013Q1

REPORT INFORMATION
  Report Type: Spontaneous
  Country: US (occurrence: None)
  Receive Date: 20130228
  Receipt Date: 20130228
  Transmission Date: 20140127
  Serious: Yes (Other)
  Sender: FDA-Public Use
  Company Number: None

PATIENT
  Age: 66 Year
  Sex: Female
  Weight: 56.25 kg

DRUGS (1)
  1. LEVOFLOXACIN [Suspect]
     Indication: BRONCHITIS
     Dosage: 1 500 MG 1 A DAY ORAL
     Route: 048
     Dates: start: 20130131, end: 20130201

REACTIONS (3)
  - Sleep disorder [None]
  - Heart rate irregular [None]
  - Rash [None]
